FAERS Safety Report 9684328 (Version 1)
Quarter: 2013Q4

REPORT INFORMATION
  Report Type: Spontaneous
  Country: TW (occurrence: TW)
  Receive Date: 20131112
  Receipt Date: 20131112
  Transmission Date: 20140711
  Serious: Yes (Death)
  Sender: FDA-Public Use
  Company Number: TW-ELI_LILLY_AND_COMPANY-TW201311001591

PATIENT
  Age: 63 Year
  Sex: Male

DRUGS (3)
  1. ALIMTA [Suspect]
     Indication: PRODUCT USED FOR UNKNOWN INDICATION
     Dosage: 100 MG, UNKNOWN
     Route: 042
     Dates: start: 20130926
  2. ALIMTA [Suspect]
     Dosage: 500 MG, UNKNOWN
     Route: 042
     Dates: start: 20130926
  3. CISPLATIN [Suspect]
     Indication: PRODUCT USED FOR UNKNOWN INDICATION
     Route: 065

REACTIONS (4)
  - Leukopenia [Fatal]
  - Neutropenia [Fatal]
  - Mouth ulceration [Unknown]
  - Aphagia [Unknown]
